FAERS Safety Report 9931564 (Version 2)
Quarter: 2014Q2

REPORT INFORMATION
  Report Type: Report from Study
  Country: US (occurrence: US)
  Receive Date: 20140228
  Receipt Date: 20140507
  Transmission Date: 20141212
  Serious: Yes (Hospitalization, Other)
  Sender: FDA-Public Use
  Company Number: US-ROCHE-1356838

PATIENT
  Sex: Female
  Weight: 47.22 kg

DRUGS (3)
  1. XELODA [Suspect]
     Indication: PRODUCT USED FOR UNKNOWN INDICATION
     Route: 065
  2. XELODA [Suspect]
     Dosage: 2 TABS TWICE A DAY
     Route: 048
  3. XELODA [Suspect]
     Dosage: DOSE: 3 TABLETS TWICE A DAY
     Route: 048
     Dates: start: 20140425

REACTIONS (2)
  - Ureteric cancer [Unknown]
  - Hip arthroplasty [Unknown]
